FAERS Safety Report 4682559-2 (Version None)
Quarter: 2005Q2

REPORT INFORMATION
  Report Type: 
  Country: None (occurrence: None)
  Receive Date: 20050606
  Receipt Date: 20050525
  Transmission Date: 20051028
  Serious: Yes (Other)
  Sender: FDA-Public Use
  Company Number: JP-JNJFOC-20050506944

PATIENT
  Age: 72 Year
  Sex: Female

DRUGS (11)
  1. OXYBUTYNIN [Suspect]
     Indication: POLLAKIURIA
     Route: 049
  2. MICARDIS [Concomitant]
  3. CATAPRES [Concomitant]
  4. APRESOLINE [Concomitant]
  5. MEXITIL [Concomitant]
  6. SELBEX [Concomitant]
  7. PRORENAL [Concomitant]
  8. TAKEPRON [Concomitant]
  9. BERIZYM [Concomitant]
  10. BETAHISTINE MESILATE [Concomitant]
  11. AROFUTO [Concomitant]

REACTIONS (2)
  - HYPERTENSION [None]
  - RETINAL HAEMORRHAGE [None]
